FAERS Safety Report 22056604 (Version 2)
Quarter: 2023Q1

REPORT INFORMATION
  Report Type: Spontaneous
  Country: CN (occurrence: CN)
  Receive Date: 20230302
  Receipt Date: 20230309
  Transmission Date: 20230417
  Serious: Yes (Death)
  Sender: FDA-Public Use
  Company Number: CN-NOVOPROD-1030478

PATIENT
  Age: 60 Year
  Sex: Female

DRUGS (6)
  1. VICTOZA [Suspect]
     Active Substance: LIRAGLUTIDE
     Indication: Type 2 diabetes mellitus
     Dosage: 0.6 MG
     Dates: start: 20230220, end: 20230221
  2. LIPITOR [Concomitant]
     Active Substance: ATORVASTATIN CALCIUM
     Indication: Product used for unknown indication
     Dosage: 10 MG
     Dates: start: 20230217, end: 20230217
  3. ROCEPHIN [Concomitant]
     Active Substance: CEFTRIAXONE SODIUM
     Indication: Product used for unknown indication
     Dosage: 1 G
     Dates: start: 20230217, end: 20230221
  4. HUMALOG MIX75/25 [Concomitant]
     Active Substance: INSULIN LISPRO
     Dosage: 22 IU, BID(22 U IN THE MORNING AND 22U IN THE EVENING)
     Dates: start: 20230218
  5. HUMALOG MIX75/25 [Concomitant]
     Active Substance: INSULIN LISPRO
     Indication: Product used for unknown indication
     Dosage: 16 IU, BID(16 U IN THE MORNING AND 16 U IN THE EVENING)
     Dates: start: 20230217, end: 20230217
  6. HUMALOG MIX75/25 [Concomitant]
     Active Substance: INSULIN LISPRO
     Dosage: 26 IU, BID(INCREASED TO 26 U IN THE MORNING AND 26U IN THE EVENING)
     Dates: start: 20230219

REACTIONS (1)
  - Heart rate increased [Fatal]

NARRATIVE: CASE EVENT DATE: 20230222
